FAERS Safety Report 5805356-0 (Version None)
Quarter: 2008Q3

REPORT INFORMATION
  Report Type: 
  Country: None (occurrence: None)
  Receive Date: 20080702
  Receipt Date: 20070608
  Transmission Date: 20090109
  Serious: Yes (Other)
  Sender: FDA-Public Use
  Company Number: HQWYE566411JUN07

PATIENT
  Age: 28 Year
  Sex: Female
  Weight: 44.49 kg

DRUGS (1)
  1. ADVIL [Suspect]
     Indication: PAIN
     Dosage: 2 TABLETS AS NEEDED, ORAL
     Route: 048
     Dates: start: 19970101

REACTIONS (1)
  - EYE SWELLING [None]
